FAERS Safety Report 8917525 (Version 1)
Quarter: 2012Q4

REPORT INFORMATION
  Report Type: 
  Country: JP (occurrence: JP)
  Receive Date: 20121120
  Receipt Date: 20121120
  Transmission Date: 20130627
  Serious: Yes (Life-Threatening, Hospitalization)
  Sender: FDA-Public Use
  Company Number: JP-BAYER-2012-119845

PATIENT
  Age: 39 Year
  Sex: Female

DRUGS (5)
  1. CIPROFLOXACIN [Suspect]
     Indication: PNEUMONIA BACTERIAL
  2. MEROPENEM [Suspect]
     Indication: PNEUMONIA BACTERIAL
  3. CEFTRIAXONE [Concomitant]
     Indication: PNEUMONIA BACTERIAL
  4. SIVELESTAT [Concomitant]
     Indication: PNEUMONIA BACTERIAL
  5. CORTICOSTEROIDS [Concomitant]
     Indication: PNEUMONIA BACTERIAL

REACTIONS (5)
  - Respiratory distress [Recovering/Resolving]
  - Pneumothorax [Recovering/Resolving]
  - Septic shock [Recovering/Resolving]
  - Hypotension [Recovering/Resolving]
  - Endotracheal intubation [None]
